FAERS Safety Report 8388625-2 (Version None)
Quarter: 2012Q2

REPORT INFORMATION
  Report Type: 
  Country: None (occurrence: None)
  Receive Date: 20120525
  Receipt Date: 20120518
  Transmission Date: 20120825
  Serious: Yes (Other)
  Sender: FDA-Public Use
  Company Number: JP-MERCK-1205USA04418

PATIENT
  Age: 53 Year
  Sex: Female

DRUGS (2)
  1. JANUVIA [Suspect]
     Indication: TYPE 2 DIABETES MELLITUS
     Route: 048
     Dates: start: 20100101, end: 20120101
  2. GLIMEPIRIDE [Concomitant]
     Route: 065
     Dates: start: 20120418, end: 20120516

REACTIONS (1)
  - HYPOGLYCAEMIA [None]
